FAERS Safety Report 5009170-8 (Version None)
Quarter: 2006Q2

REPORT INFORMATION
  Report Type: 
  Country: None (occurrence: None)
  Receive Date: 20060518
  Receipt Date: 20060502
  Transmission Date: 20061013
  Serious: Yes (Hospitalization, Disabling)
  Sender: FDA-Public Use
  Company Number: 414262

PATIENT
  Age: 17 Year
  Sex: Female
  Weight: 45.8 kg

DRUGS (3)
  1. ACCUTANE [Suspect]
     Indication: ACNE
     Dosage: 40 MG DAILY ORAL
     Route: 048
     Dates: start: 19980713
  2. BACTRIM DS [Concomitant]
  3. DRYSOL (ALUMINUM CHLORIDE) [Concomitant]

REACTIONS (45)
  - ANAEMIA [None]
  - ANKYLOSING SPONDYLITIS [None]
  - ANXIETY [None]
  - ARTHRALGIA [None]
  - ARTHROPOD BITE [None]
  - BACK PAIN [None]
  - BLOOD ALBUMIN DECREASED [None]
  - BLOOD GLUCOSE DECREASED [None]
  - CERVICAL DYSPLASIA [None]
  - CERVICITIS [None]
  - CHEILITIS [None]
  - CHEST DISCOMFORT [None]
  - COLITIS ULCERATIVE [None]
  - CROHN'S DISEASE [None]
  - DEHYDRATION [None]
  - DEPRESSION [None]
  - DIARRHOEA [None]
  - DIZZINESS [None]
  - DRY SKIN [None]
  - ERYTHEMA [None]
  - EYE IRRITATION [None]
  - FATIGUE [None]
  - FUNGAL INFECTION [None]
  - GASTROOESOPHAGEAL REFLUX DISEASE [None]
  - HAEMORRHOIDS [None]
  - HEADACHE [None]
  - HERPES VIRUS INFECTION [None]
  - INSOMNIA [None]
  - MULTI-ORGAN DISORDER [None]
  - NAUSEA [None]
  - NEUTROPHIL COUNT INCREASED [None]
  - OEDEMA [None]
  - OSTEOARTHRITIS [None]
  - PARAESTHESIA [None]
  - PES CAVUS [None]
  - PLATELET COUNT INCREASED [None]
  - POUCHITIS [None]
  - RADICULOPATHY [None]
  - RECTAL HAEMORRHAGE [None]
  - ROAD TRAFFIC ACCIDENT [None]
  - STRESS [None]
  - TENDON INJURY [None]
  - VISUAL DISTURBANCE [None]
  - VOMITING [None]
  - WEIGHT DECREASED [None]
